FAERS Safety Report 8580406-X (Version None)
Quarter: 2012Q3

REPORT INFORMATION
  Report Type: 
  Country: None (occurrence: None)
  Receive Date: 20120808
  Receipt Date: 20120725
  Transmission Date: 20120928
  Serious: Yes (Hospitalization)
  Sender: FDA-Public Use
  Company Number: US-WATSON-2012-13551

PATIENT
  Age: 18 Month
  Sex: Female

DRUGS (3)
  1. PROPRANOLOL [Suspect]
     Dosage: 1.0  MG/KG
     Route: 065
  2. PROPRANOLOL [Suspect]
     Indication: HAEMANGIOMA
     Dosage: 1.25 MG/KG DAILY IN 2 DIVIDED DOSES
     Route: 065
  3. PROPRANOLOL [Suspect]
     Dosage: 0.5 MG/KG, DAILY IN 2 DIVIDED DOSES
     Route: 065

REACTIONS (1)
  - HYPOGLYCAEMIA [None]
